FAERS Safety Report 10419631 (Version 1)
Quarter: 2014Q3

REPORT INFORMATION
  Report Type: Spontaneous
  Country: GB (occurrence: None)
  Receive Date: 20140827
  Receipt Date: 20140827
  Transmission Date: 20150326
  Serious: Yes (Other)
  Sender: FDA-Public Use
  Company Number: 2014AP003998

PATIENT
  Age: 72 Year
  Sex: Male
  Weight: 60.3 kg

DRUGS (3)
  1. ALENDRONATE (ALENDRONATE) TABLET [Suspect]
     Active Substance: ALENDRONATE SODIUM
     Indication: PROPHYLAXIS
     Route: 048
     Dates: start: 20140716, end: 20140730
  2. ALENDRONATE (ALENDRONATE) TABLET [Suspect]
     Active Substance: ALENDRONATE SODIUM
     Indication: FRACTURE
     Route: 048
     Dates: start: 20140716, end: 20140730
  3. ZOPICLONE [Concomitant]
     Active Substance: ZOPICLONE

REACTIONS (1)
  - Trismus [None]

NARRATIVE: CASE EVENT DATE: 20140716
